FAERS Safety Report 13626385 (Version 2)
Quarter: 2018Q1

REPORT INFORMATION
  Report Type: Spontaneous
  Country: US (occurrence: US)
  Receive Date: 20170607
  Receipt Date: 20180119
  Transmission Date: 20180508
  Serious: No
  Sender: FDA-Public Use
  Company Number: US-JNJFOC-20170416705

PATIENT
  Sex: Male

DRUGS (4)
  1. RISPERDAL [Suspect]
     Active Substance: RISPERIDONE
     Indication: PSYCHOTIC DISORDER
     Route: 048
     Dates: start: 20070120, end: 20070127
  2. RISPERDAL [Suspect]
     Active Substance: RISPERIDONE
     Indication: CEREBRAL DISORDER
     Route: 048
     Dates: start: 20070120, end: 20070127
  3. RISPERDAL [Suspect]
     Active Substance: RISPERIDONE
     Indication: CEREBRAL DISORDER
     Route: 048
     Dates: start: 20070122, end: 20070130
  4. RISPERDAL [Suspect]
     Active Substance: RISPERIDONE
     Indication: PSYCHOTIC DISORDER
     Route: 048
     Dates: start: 20070122, end: 20070130

REACTIONS (2)
  - Gynaecomastia [Unknown]
  - Emotional disorder [Unknown]
